FAERS Safety Report 7842685-3 (Version None)
Quarter: 2011Q4

REPORT INFORMATION
  Report Type: 
  Country: None (occurrence: None)
  Receive Date: 20111025
  Receipt Date: 20111007
  Transmission Date: 20120403
  Serious: Yes (Other)
  Sender: FDA-Public Use
  Company Number: IT-BAYER-2011-091721

PATIENT
  Age: 21 Year
  Sex: Male

DRUGS (4)
  1. NEXAVAR [Suspect]
     Dosage: DAILY DOSE 100 MG
  2. NEXAVAR [Suspect]
     Indication: LEUKAEMIA RECURRENT
     Dosage: 400 MG, BID
  3. NEXAVAR [Suspect]
     Dosage: 200 MG, BID
  4. NEXAVAR [Suspect]
     Dosage: DAILY DOSE 100 MG

REACTIONS (4)
  - RASH [None]
  - POLYCYTHAEMIA [None]
  - CHRONIC GRAFT VERSUS HOST DISEASE [None]
  - HEPATOTOXICITY [None]
